FAERS Safety Report 6710261-1 (Version None)
Quarter: 2010Q2

REPORT INFORMATION
  Report Type: 
  Country: None (occurrence: None)
  Receive Date: 20100504
  Receipt Date: 20100422
  Transmission Date: 20101027
  Serious: Yes (Death, Other)
  Sender: FDA-Public Use
  Company Number: US-GENZYME-MOZO-1000324

PATIENT
  Sex: Female

DRUGS (4)
  1. MOZOBIL [Suspect]
     Indication: HAEMATOPOIETIC STEM CELL MOBILISATION
     Route: 065
  2. MOZOBIL [Suspect]
     Indication: MULTIPLE MYELOMA
  3. NEUPOGEN [Concomitant]
     Indication: HAEMATOPOIETIC STEM CELL MOBILISATION
  4. NEUPOGEN [Concomitant]
     Indication: MULTIPLE MYELOMA

REACTIONS (2)
  - HEPATIC FAILURE [None]
  - MULTIPLE MYELOMA [None]
